FAERS Safety Report 21457273 (Version 1)
Quarter: 2022Q4

REPORT INFORMATION
  Report Type: Spontaneous
  Country: US (occurrence: None)
  Receive Date: 20221013
  Receipt Date: 20221013
  Transmission Date: 20230113
  Serious: Yes (Hospitalization)
  Sender: FDA-Public Use
  Company Number: None

PATIENT
  Age: 52 Year
  Sex: Female
  Weight: 97.3 kg

DRUGS (1)
  1. GAMUNEX-C [Suspect]
     Active Substance: HUMAN IMMUNOGLOBULIN G
     Indication: Immunodeficiency common variable

REACTIONS (7)
  - Malaise [None]
  - Dysarthria [None]
  - Hyperhidrosis [None]
  - Headache [None]
  - Seizure [None]
  - Loss of consciousness [None]
  - Oxygen saturation decreased [None]

NARRATIVE: CASE EVENT DATE: 20221012
